FAERS Safety Report 9995791 (Version 1)
Quarter: 2014Q1

REPORT INFORMATION
  Report Type: Spontaneous
  Country: US (occurrence: US)
  Receive Date: 20140311
  Receipt Date: 20140311
  Transmission Date: 20141002
  Serious: No
  Sender: FDA-Public Use
  Company Number: US-009507513-1403USA000053

PATIENT
  Age: 62 Year
  Sex: Male

DRUGS (2)
  1. CORICIDIN HBP COLD AND FLU [Suspect]
     Indication: NASAL CONGESTION
     Dosage: 2 TABLETS, ONCE
     Route: 048
  2. CORICIDIN HBP COLD AND FLU [Suspect]
     Indication: SINUS HEADACHE

REACTIONS (2)
  - Drug ineffective [Unknown]
  - Off label use [Unknown]
